FAERS Safety Report 18831202 (Version 1)
Quarter: 2021Q1

REPORT INFORMATION
  Report Type: Spontaneous
  Country: BR (occurrence: BR)
  Receive Date: 20210203
  Receipt Date: 20210203
  Transmission Date: 20210419
  Serious: Yes (Other)
  Sender: FDA-Public Use
  Company Number: BR-BAXTER-2021BAX002077

PATIENT
  Age: 49 Year
  Sex: Female
  Weight: 63.4 kg

DRUGS (12)
  1. FOSAPREPITANT [Concomitant]
     Active Substance: FOSAPREPITANT
     Indication: PREMEDICATION
     Route: 065
  2. PALONOSETRON. [Concomitant]
     Active Substance: PALONOSETRON HYDROCHLORIDE
     Indication: PREMEDICATION
     Route: 065
  3. CLORETO DE S?DIO ? BAXTER [Suspect]
     Active Substance: SODIUM CHLORIDE
     Dosage: 3RD CYCLE AC PROTOCOL, DOXORUBICIN DILUTED IN SODIUM CHLORIDE 250 ML + CYCLOPHOSPHAMIDE 1020 MG
     Route: 042
     Dates: start: 20201118, end: 20201118
  4. DEXAMETHASONE. [Concomitant]
     Active Substance: DEXAMETHASONE
     Indication: PREMEDICATION
     Route: 065
  5. GENUXAL [Suspect]
     Active Substance: CYCLOPHOSPHAMIDE
     Indication: PRODUCT USED FOR UNKNOWN INDICATION
     Dosage: 1 TO 2 CYCLES AC PROTOCOL, DOXORUBICIN DILUTED IN SODIUM CHLORIDE + CYCLOPHOSPHAMIDE
     Route: 042
     Dates: start: 20201021
  6. CLORETO DE S?DIO ? BAXTER [Suspect]
     Active Substance: SODIUM CHLORIDE
     Indication: MEDICATION DILUTION
     Dosage: 1?2 CYCLES AC PROTOCOL, DOXORUBICIN DILUTED IN SODIUM CHLORIDE + CYCLOPHOSPHAMIDE
     Route: 042
     Dates: start: 20201021
  7. DOXIL [Suspect]
     Active Substance: DOXORUBICIN HYDROCHLORIDE
     Dosage: 3RD CYCLE AC PROTOCOL, DOXORUBICIN DILUTED IN SODIUM CHLORIDE 250 ML + CYCLOPHOSPHAMIDE 1020 MG
     Route: 042
     Dates: start: 20201118, end: 20201118
  8. GENUXAL [Suspect]
     Active Substance: CYCLOPHOSPHAMIDE
     Dosage: 4TH CYCLE AC PROTOCOL, DOXORUBICIN DILUTED IN SODIUM CHLORIDE 250 ML + CYCLOPHOSPHAMIDE 1020 MG
     Route: 042
  9. DOXIL [Suspect]
     Active Substance: DOXORUBICIN HYDROCHLORIDE
     Indication: PRODUCT USED FOR UNKNOWN INDICATION
     Dosage: 1?2 CYCLES AC PROTOCOL, DOXORUBICIN DILUTED IN SODIUM CHLORIDE + CYCLOPHOSPHAMIDE
     Route: 042
     Dates: start: 20201021
  10. DOXIL [Suspect]
     Active Substance: DOXORUBICIN HYDROCHLORIDE
     Dosage: 4TH CYCLE AC PROTOCOL, DOXORUBICIN DILUTED IN SODIUM CHLORIDE 250 ML + CYCLOPHOSPHAMIDE 1020 MG
     Route: 042
  11. GENUXAL [Suspect]
     Active Substance: CYCLOPHOSPHAMIDE
     Dosage: 3RD CYCLE AC PROTOCOL, DOXORUBICIN DILUTED IN SODIUM CHLORIDE 250 ML + CYCLOPHOSPHAMIDE 1020 MG
     Route: 042
     Dates: start: 20201118, end: 20201118
  12. CLORETO DE S?DIO ? BAXTER [Suspect]
     Active Substance: SODIUM CHLORIDE
     Dosage: 4TH CYCLE AC PROTOCOL, DOXORUBICIN DILUTED IN SODIUM CHLORIDE 250 ML + CYCLOPHOSPHAMIDE 1020 MG
     Route: 042

REACTIONS (1)
  - Neutropenia [Recovered/Resolved]

NARRATIVE: CASE EVENT DATE: 20201207
